FAERS Safety Report 5026550-5 (Version None)
Quarter: 2006Q2

REPORT INFORMATION
  Report Type: 
  Country: None (occurrence: None)
  Receive Date: 20060615
  Receipt Date: 20060606
  Transmission Date: 20061013
  Serious: Yes (Hospitalization, Other)
  Sender: FDA-Public Use
  Company Number: US-AVENTIS-200615099US

PATIENT
  Age: 31 Year
  Sex: Female
  Weight: 52.27 kg

DRUGS (5)
  1. KETEK [Suspect]
     Indication: SINUSITIS
     Route: 048
     Dates: start: 20060301, end: 20060301
  2. KETEK [Suspect]
     Indication: RHINITIS
     Route: 048
     Dates: start: 20060301, end: 20060301
  3. SINGULAIR [Concomitant]
  4. LEVOTHYROXINE SODIUM [Concomitant]
  5. ORAL CONTRACEPTIVE NOS [Concomitant]
     Dosage: DOSE: UNKNOWN

REACTIONS (4)
  - ALANINE AMINOTRANSFERASE INCREASED [None]
  - ASPARTATE AMINOTRANSFERASE INCREASED [None]
  - BLOOD ALKALINE PHOSPHATASE INCREASED [None]
  - SYNCOPE [None]
